FAERS Safety Report 18896418 (Version 10)
Quarter: 2021Q3

REPORT INFORMATION
  Report Type: Spontaneous
  Country: CA (occurrence: CA)
  Receive Date: 20210216
  Receipt Date: 20210930
  Transmission Date: 20211014
  Serious: Yes (Other)
  Sender: FDA-Public Use
  Company Number: CA-CELLTRION INC.-2020CA030514

PATIENT

DRUGS (17)
  1. INFLECTRA [Suspect]
     Active Substance: INFLIXIMAB-DYYB
     Indication: COLITIS ULCERATIVE
     Dosage: 500 MG AT 0, 2 AND 6 WEEKS, THEN EVERY 8 WEEKS
     Route: 042
     Dates: start: 20201023, end: 20201207
  2. INFLECTRA [Suspect]
     Active Substance: INFLIXIMAB-DYYB
     Dosage: 1000 MG,  EVERY 4 WEEKS
     Route: 042
     Dates: start: 20210305
  3. INFLECTRA [Suspect]
     Active Substance: INFLIXIMAB-DYYB
     Dosage: 1000 MG,  EVERY 4 WEEKS
     Route: 042
     Dates: start: 20210723
  4. INFLECTRA [Suspect]
     Active Substance: INFLIXIMAB-DYYB
     Dosage: 1000 MG,  EVERY 4 WEEKS
     Route: 042
     Dates: start: 20210820
  5. PREDNISONE. [Concomitant]
     Active Substance: PREDNISONE
     Dosage: 5 MG 8 PER DAY AND TAPERING DOWN BY 5MG PER WEEK
     Route: 065
     Dates: start: 20201024
  6. INFLECTRA [Suspect]
     Active Substance: INFLIXIMAB-DYYB
     Dosage: 1000 MG EVERY 4 WEEKS
     Route: 042
     Dates: start: 20210205
  7. INFLECTRA [Suspect]
     Active Substance: INFLIXIMAB-DYYB
     Dosage: 500 MG AT 0, 2 AND 6 WEEKS, THEN EVERY 8 WEEKS
     Route: 042
     Dates: start: 20201106
  8. INFLECTRA [Suspect]
     Active Substance: INFLIXIMAB-DYYB
     Dosage: 1000 MG,  EVERY 4 WEEKS
     Route: 042
     Dates: start: 20210402
  9. INFLECTRA [Suspect]
     Active Substance: INFLIXIMAB-DYYB
     Dosage: 1000 MG,  EVERY 4 WEEKS
     Route: 042
     Dates: start: 20210917
  10. INFLECTRA [Suspect]
     Active Substance: INFLIXIMAB-DYYB
     Dosage: 500 MG AT 0, 2 AND 6 WEEKS, THEN EVERY 8 WEEKS
     Route: 042
     Dates: start: 20201106
  11. INFLECTRA [Suspect]
     Active Substance: INFLIXIMAB-DYYB
     Dosage: 500 MG AT 0, 2 AND 6 WEEKS, THEN EVERY 8 WEEKS
     Route: 042
     Dates: start: 20201207, end: 20201207
  12. INFLECTRA [Suspect]
     Active Substance: INFLIXIMAB-DYYB
     Dosage: 1000 MG (EVERY 4 WEEKS)
     Route: 042
     Dates: start: 20210528
  13. INFLECTRA [Suspect]
     Active Substance: INFLIXIMAB-DYYB
     Dosage: 1000 MG,  EVERY 4 WEEKS
     Route: 042
     Dates: start: 20210625, end: 20210625
  14. HYDROCORTISONE. [Concomitant]
     Active Substance: HYDROCORTISONE
     Indication: PREMEDICATION
     Dosage: 100 MG
     Route: 042
     Dates: start: 20201207
  15. INFLECTRA [Suspect]
     Active Substance: INFLIXIMAB-DYYB
     Dosage: 1000 MG EVERY 4 WEEKS
     Route: 042
     Dates: start: 20210108
  16. AMOXICILLIN. [Concomitant]
     Active Substance: AMOXICILLIN
     Dosage: UNK
     Route: 048
     Dates: start: 20210723
  17. PANTOPRAZOLE [Concomitant]
     Active Substance: PANTOPRAZOLE
     Dosage: 40 MG
     Route: 065

REACTIONS (11)
  - Off label use [Unknown]
  - Off label use [Unknown]
  - Blood pressure fluctuation [Unknown]
  - Weight decreased [Unknown]
  - Hypoaesthesia [Unknown]
  - Therapeutic response unexpected [Unknown]
  - Blood pressure increased [Not Recovered/Not Resolved]
  - Weight increased [Unknown]
  - Off label use [Unknown]
  - Intentional product use issue [Unknown]
  - Myalgia [Unknown]

NARRATIVE: CASE EVENT DATE: 20201207
